FAERS Safety Report 12119113 (Version 1)
Quarter: 2016Q1

REPORT INFORMATION
  Report Type: Spontaneous
  Country: US (occurrence: None)
  Receive Date: 20160225
  Receipt Date: 20160225
  Transmission Date: 20160526
  Serious: Yes (Other)
  Sender: FDA-Public Use
  Company Number: None

PATIENT
  Sex: Female
  Weight: 79.83 kg

DRUGS (1)
  1. HUMIRA [Suspect]
     Active Substance: ADALIMUMAB
     Indication: POST LAMINECTOMY SYNDROME
     Dosage: BIWEEKLY?ONGOING POSSBLY
     Route: 058
     Dates: start: 201504

REACTIONS (2)
  - Infection [None]
  - Therapy cessation [None]
